FAERS Safety Report 18427201 (Version 6)
Quarter: 2021Q1

REPORT INFORMATION
  Report Type: Spontaneous
  Country: US (occurrence: US)
  Receive Date: 20201026
  Receipt Date: 20210111
  Transmission Date: 20210419
  Serious: No
  Sender: FDA-Public Use
  Company Number: US-PFIZER INC-2020411826

PATIENT
  Age: 50 Year
  Sex: Female

DRUGS (4)
  1. IBRANCE [Suspect]
     Active Substance: PALBOCICLIB
     Dosage: 125 MG, 1X/DAY
     Route: 048
     Dates: start: 20171030
  2. IBRANCE [Suspect]
     Active Substance: PALBOCICLIB
     Indication: BREAST CANCER FEMALE
     Dosage: 100 MG, DAILY (DAILY FOR 21 DAYS)
     Dates: start: 20160822
  3. IBRANCE [Suspect]
     Active Substance: PALBOCICLIB
     Dosage: 100 MG
     Dates: start: 20200303
  4. IBRANCE [Suspect]
     Active Substance: PALBOCICLIB
     Dosage: 100 MG, CYCLIC (100 MG DAILY X 21 DAYS, 7 DAYS OFF)
     Dates: start: 20160824

REACTIONS (6)
  - Product dose omission issue [Unknown]
  - Vitiligo [Not Recovered/Not Resolved]
  - Pruritus [Unknown]
  - Vitamin B complex deficiency [Unknown]
  - White blood cell count decreased [Unknown]
  - Rash [Unknown]
